FAERS Safety Report 4833240-8 (Version None)
Quarter: 2005Q4

REPORT INFORMATION
  Report Type: 
  Country: None (occurrence: None)
  Receive Date: 20051117
  Receipt Date: 20051107
  Transmission Date: 20060501
  Serious: Yes (Disabling)
  Sender: FDA-Public Use
  Company Number: EWC051147192

PATIENT
  Age: 52 Year
  Sex: Male

DRUGS (2)
  1. GEMZAR [Suspect]
     Indication: METASTASES TO LIVER
     Dates: start: 20051011
  2. GEMZAR [Suspect]
     Indication: PANCREATIC CARCINOMA METASTATIC
     Dates: start: 20051011

REACTIONS (3)
  - DYSSTASIA [None]
  - MUSCLE SPASMS [None]
  - NAUSEA [None]
